FAERS Safety Report 18793193 (Version 1)
Quarter: 2021Q1

REPORT INFORMATION
  Report Type: Spontaneous
  Country: US (occurrence: US)
  Receive Date: 20210126
  Receipt Date: 20210126
  Transmission Date: 20210419
  Serious: No
  Sender: FDA-Public Use
  Company Number: None

PATIENT
  Age: 67 Year
  Sex: Male
  Weight: 97.4 kg

DRUGS (6)
  1. LOVENOX 40 MG SC DAILY [Concomitant]
     Dates: start: 20210107, end: 20210111
  2. REMDESIVIR. [Suspect]
     Active Substance: REMDESIVIR
     Indication: COVID-19
     Route: 040
     Dates: start: 20210105, end: 20210109
  3. HYDROCORTISONE 100 MG IV Q12H [Concomitant]
     Dates: start: 20210107, end: 20210109
  4. TUSSIONEX PENNKINETIC [Concomitant]
     Active Substance: CHLORPHENIRAMINE\HYDROCODONE
     Dates: start: 20210107, end: 20210111
  5. DEXAMETHASONE 6 MG IV DAILY [Concomitant]
     Dates: start: 20210105, end: 20210110
  6. TUSSIN?DM [Concomitant]
     Dates: start: 20210106, end: 20210110

REACTIONS (2)
  - Bradycardia [None]
  - Heart rate irregular [None]

NARRATIVE: CASE EVENT DATE: 20210109
